FAERS Safety Report 4377858-8 (Version None)
Quarter: 2004Q2

REPORT INFORMATION
  Report Type: 
  Country: None (occurrence: None)
  Receive Date: 20040608
  Receipt Date: 20040511
  Transmission Date: 20050107
  Serious: Yes (Death, Life-Threatening, Hospitalization)
  Sender: FDA-Public Use
  Company Number: 2004AP01148

PATIENT
  Age: 73 Year
  Sex: Female

DRUGS (7)
  1. IRESSA [Suspect]
     Indication: ADENOCARCINOMA
     Dosage: 250 MG DAILY PO
     Route: 048
     Dates: start: 20031030, end: 20031115
  2. IRESSA [Suspect]
     Indication: NON-SMALL CELL LUNG CANCER
     Dosage: 250 MG DAILY PO
     Route: 048
     Dates: start: 20031030, end: 20031115
  3. GASTER [Concomitant]
  4. AREDIA [Concomitant]
  5. LOPEMIN [Concomitant]
  6. SULPERAZON [Concomitant]
  7. AMINOFLUID [Concomitant]

REACTIONS (7)
  - DEHYDRATION [None]
  - DIARRHOEA [None]
  - HEPATIC FUNCTION ABNORMAL [None]
  - INTERSTITIAL LUNG DISEASE [None]
  - MULTI-ORGAN FAILURE [None]
  - RENAL FUNCTION TEST ABNORMAL [None]
  - STOMATITIS [None]
